FAERS Safety Report 9454641 (Version 2)
Quarter: 2013Q4

REPORT INFORMATION
  Report Type: Spontaneous
  Country: US (occurrence: US)
  Receive Date: 20130812
  Receipt Date: 20131023
  Transmission Date: 20140711
  Serious: Yes (Other)
  Sender: FDA-Public Use
  Company Number: US-BRISTOL-MYERS SQUIBB COMPANY-19156652

PATIENT
  Age: 47 Year
  Sex: Female
  Weight: 63.49 kg

DRUGS (10)
  1. ORENCIA [Suspect]
     Indication: RHEUMATOID ARTHRITIS
     Dosage: LAST DOSE ON 9JAN13
     Route: 042
     Dates: start: 200807
  2. LYRICA [Concomitant]
  3. HYDROCODONE [Concomitant]
     Indication: CONDITION AGGRAVATED
  4. CELEBREX [Concomitant]
     Indication: CONDITION AGGRAVATED
  5. CELEBREX [Concomitant]
     Indication: OEDEMA PERIPHERAL
  6. TYLENOL ARTHRITIS [Concomitant]
     Indication: CONDITION AGGRAVATED
  7. VITAMIN B COMPLEX [Concomitant]
  8. FOLIC ACID [Concomitant]
  9. CALCIUM + VITAMIN D [Concomitant]
  10. PLAQUENIL [Concomitant]
     Dates: start: 2012, end: 201305

REACTIONS (2)
  - Macular degeneration [Unknown]
  - Drug ineffective [Unknown]
